FAERS Safety Report 6323580-8 (Version None)
Quarter: 2009Q3

REPORT INFORMATION
  Report Type: 
  Country: None (occurrence: None)
  Receive Date: 20090824
  Receipt Date: 20090610
  Transmission Date: 20100115
  Serious: No
  Sender: FDA-Public Use
  Company Number: US-ABBOTT-09P-163-0579103-00

PATIENT
  Sex: Female
  Weight: 83.082 kg

DRUGS (4)
  1. NIASPAN [Suspect]
     Indication: LOW DENSITY LIPOPROTEIN INCREASED
     Dosage: AT BEDTIME
     Route: 048
     Dates: start: 20090501
  2. PEPCID [Concomitant]
     Indication: ABDOMINAL DISCOMFORT
  3. AVALIDE [Concomitant]
     Indication: DRUG USE FOR UNKNOWN INDICATION
     Dosage: 12/150 MILLIGRAMS 1/2 PILL DAILY
     Route: 048
  4. ASPIRIN [Concomitant]
     Indication: DRUG USE FOR UNKNOWN INDICATION
     Dosage: AT BEDTIME FOR 1ST 3 WEEKS OF NIASPAN
     Route: 048

REACTIONS (3)
  - ANXIETY [None]
  - FATIGUE [None]
  - FLUSHING [None]
